FAERS Safety Report 14566936 (Version 1)
Quarter: 2018Q1

REPORT INFORMATION
  Report Type: Report from Study
  Country: ES (occurrence: ES)
  Receive Date: 20180223
  Receipt Date: 20180223
  Transmission Date: 20180509
  Serious: Yes (Hospitalization)
  Sender: FDA-Public Use
  Company Number: ES-TEVA-2018-ES-859117

PATIENT
  Age: 83 Year
  Sex: Female

DRUGS (5)
  1. OMEPRAZOL 20 MG 1 C?PSULA [Concomitant]
     Route: 048
  2. ALDACTONE [Suspect]
     Active Substance: SPIRONOLACTONE
     Indication: LIVER DISORDER
     Route: 048
     Dates: start: 201701, end: 20170721
  3. CARVEDILOL 6,25 MG COMPRIMIDO [Suspect]
     Active Substance: CARVEDILOL
     Indication: LIVER DISORDER
     Route: 048
     Dates: start: 201701, end: 20170721
  4. FUROSEMIDA 40 MG COMPRIMIDO [Suspect]
     Active Substance: FUROSEMIDE
     Indication: LIVER DISORDER
     Route: 048
     Dates: start: 201701, end: 20170721
  5. ACFOL 5 MG COMPRIMIDOS [Concomitant]
     Indication: LIVER DISORDER
     Route: 048

REACTIONS (3)
  - Bradycardia [Recovering/Resolving]
  - Hypotension [Recovering/Resolving]
  - Presyncope [Recovering/Resolving]

NARRATIVE: CASE EVENT DATE: 20170720
